FAERS Safety Report 4428047-X (Version None)
Quarter: 2004Q3

REPORT INFORMATION
  Report Type: 
  Country: None (occurrence: None)
  Receive Date: 20040726
  Receipt Date: 20040426
  Transmission Date: 20050211
  Serious: No
  Sender: FDA-Public Use
  Company Number: USA030946625

PATIENT
  Age: 83 Year
  Sex: Female

DRUGS (12)
  1. FORTEO [Suspect]
     Indication: BONE DENSITY DECREASED
     Dosage: 20 UG/DAY
     Dates: start: 20030903
  2. FORTEO [Suspect]
     Indication: OSTEOPOROSIS
     Dosage: 20 UG/DAY
     Dates: start: 20030903
  3. ASPIRIN [Concomitant]
  4. LASIX [Concomitant]
  5. PREVACID [Concomitant]
  6. ZESTRIL [Concomitant]
  7. SYNTHROID [Concomitant]
  8. BETAPACE [Concomitant]
  9. NORVASC [Concomitant]
  10. LIPITOR [Concomitant]
  11. ZOLOFT [Concomitant]
  12. ULTRACET [Concomitant]

REACTIONS (10)
  - EXTRASYSTOLES [None]
  - HEADACHE [None]
  - HEART RATE INCREASED [None]
  - INJECTION SITE BURNING [None]
  - INJECTION SITE ERYTHEMA [None]
  - INJECTION SITE HAEMORRHAGE [None]
  - INJECTION SITE STINGING [None]
  - NERVOUSNESS [None]
  - PAIN EXACERBATED [None]
  - PSYCHOMOTOR HYPERACTIVITY [None]
